FAERS Safety Report 4719271-7 (Version None)
Quarter: 2005Q3

REPORT INFORMATION
  Report Type: 
  Country: None (occurrence: None)
  Receive Date: 20050719
  Receipt Date: 20050630
  Transmission Date: 20060218
  Serious: Yes (Death, Hospitalization, Other)
  Sender: FDA-Public Use
  Company Number: MAG-2005-0000373

PATIENT
  Age: 55 Year
  Sex: Female

DRUGS (15)
  1. OXYCODONE HCL [Suspect]
     Indication: NEOPLASM MALIGNANT
     Dosage: SEE IMAGE
     Route: 048
     Dates: start: 20041207, end: 20041213
  2. OXYCODONE HCL [Suspect]
     Indication: NEOPLASM MALIGNANT
     Dosage: SEE IMAGE
     Route: 048
     Dates: start: 20041214, end: 20050106
  3. MUCOSTA (REBAMIPIDE) [Concomitant]
  4. MAG-LAX (PARAFFIN, LIQUID MAGNESIUM HYDROXIDE) [Concomitant]
  5. MORPHINE [Concomitant]
  6. VEPESID [Concomitant]
  7. CONSTAN (ALPRAZOLAM) [Concomitant]
  8. LENDROMIN (BROTIZOLAM) [Concomitant]
  9. PURSENNID (SENNA LEAF) [Concomitant]
  10. LAXOBERON (SODIUM PICOSULFATE ) [Concomitant]
  11. VOLTAREN [Concomitant]
  12. LOXONIN (LOXOPROFEN SODIUM) [Concomitant]
  13. BORRAZA-G (LIDOCAINE, TRIBENOSIDE) [Concomitant]
  14. MOBIC [Concomitant]
  15. DIAZEPAM [Concomitant]

REACTIONS (5)
  - ANAL FISTULA [None]
  - CONSTIPATION [None]
  - ILEUS [None]
  - MALIGNANT NEOPLASM PROGRESSION [None]
  - OVARIAN CANCER [None]
